FAERS Safety Report 17198476 (Version 1)
Quarter: 2019Q4

REPORT INFORMATION
  Report Type: Report from Study
  Country: BR (occurrence: BR)
  Receive Date: 20191225
  Receipt Date: 20191225
  Transmission Date: 20200122
  Serious: Yes (Other)
  Sender: FDA-Public Use
  Company Number: BR-TEVA-2019-BR-1096824

PATIENT
  Age: 37 Year
  Sex: Female

DRUGS (2)
  1. COPAXONE [Suspect]
     Active Substance: GLATIRAMER ACETATE
     Indication: MULTIPLE SCLEROSIS
     Dosage: 20 MILLIGRAM/MILLILITERS DAILY;
     Route: 065
     Dates: start: 20120829, end: 20190824
  2. CAPTOPRIL. [Concomitant]
     Active Substance: CAPTOPRIL

REACTIONS (17)
  - Injection site reaction [Unknown]
  - Injection site injury [Not Recovered/Not Resolved]
  - Injection site necrosis [Not Recovered/Not Resolved]
  - Injection site induration [Not Recovered/Not Resolved]
  - Injection site hypoaesthesia [Not Recovered/Not Resolved]
  - Wrong technique in product usage process [Unknown]
  - Injection site haematoma [Not Recovered/Not Resolved]
  - Injection site discolouration [Unknown]
  - Extravasation blood [Unknown]
  - Injection site haemorrhage [Unknown]
  - Injection site atrophy [Not Recovered/Not Resolved]
  - Injection site nodule [Not Recovered/Not Resolved]
  - Insomnia [Not Recovered/Not Resolved]
  - Injection site erythema [Unknown]
  - Injection site pain [Not Recovered/Not Resolved]
  - Skin injury [Unknown]
  - Herpes zoster [Unknown]

NARRATIVE: CASE EVENT DATE: 2018
